FAERS Safety Report 21917795 (Version 1)
Quarter: 2023Q1

REPORT INFORMATION
  Report Type: Report from Study
  Country: CO (occurrence: CO)
  Receive Date: 20230127
  Receipt Date: 20230127
  Transmission Date: 20230417
  Serious: Yes (Hospitalization)
  Sender: FDA-Public Use
  Company Number: CO-ABBVIE-4284102

PATIENT
  Age: 32 Year
  Sex: Female
  Weight: 42 kg

DRUGS (1)
  1. ZEMPLAR [Suspect]
     Active Substance: PARICALCITOL
     Indication: Chronic kidney disease
     Route: 042
     Dates: start: 20170116, end: 20210617

REACTIONS (1)
  - Device physical property issue [Recovering/Resolving]

NARRATIVE: CASE EVENT DATE: 20221222
